FAERS Safety Report 8338776-3 (Version None)
Quarter: 2012Q2

REPORT INFORMATION
  Report Type: 
  Country: None (occurrence: None)
  Receive Date: 20120504
  Receipt Date: 20120426
  Transmission Date: 20120825
  Serious: Yes (Other)
  Sender: FDA-Public Use
  Company Number: DE-ROCHE-1065083

PATIENT
  Age: 36 Year
  Sex: Male

DRUGS (1)
  1. XOLAIR [Suspect]
     Indication: DERMATITIS ATOPIC
     Route: 058
     Dates: start: 20101001, end: 20110101

REACTIONS (3)
  - LEUKOPLAKIA ORAL [None]
  - TONGUE NEOPLASM MALIGNANT STAGE UNSPECIFIED [None]
  - TONGUE DISCOLOURATION [None]
